FAERS Safety Report 9972241 (Version 1)
Quarter: 2014Q1

REPORT INFORMATION
  Report Type: Spontaneous
  Country: US (occurrence: US)
  Receive Date: 20140306
  Receipt Date: 20140306
  Transmission Date: 20141002
  Serious: Yes (Hospitalization)
  Sender: FDA-Public Use
  Company Number: US-BAYER-2014-033307

PATIENT
  Age: 19 Year
  Sex: Female

DRUGS (5)
  1. YAZ [Suspect]
  2. PRISTIQ [Concomitant]
     Dosage: 100 MG, QD
  3. LAMICTAL [Concomitant]
     Dosage: 100 MG, QD
  4. TOPAMAX [Concomitant]
     Dosage: 100 MG, QD
  5. TOPAMAX [Concomitant]
     Dosage: 50 MG, BID

REACTIONS (1)
  - Pulmonary embolism [Recovered/Resolved]
